FAERS Safety Report 12451613 (Version 2)
Quarter: 2016Q3

REPORT INFORMATION
  Report Type: Spontaneous
  Country: US (occurrence: US)
  Receive Date: 20160609
  Receipt Date: 20160817
  Transmission Date: 20161109
  Serious: Yes (Life-Threatening, Hospitalization, Other)
  Sender: FDA-Public Use
  Company Number: US-GLAXOSMITHKLINE-US2016081994

PATIENT
  Sex: Male

DRUGS (3)
  1. ASPIRIN. [Suspect]
     Active Substance: ASPIRIN
     Route: 048
  2. EXCEDRIN MIGRAINE [Suspect]
     Active Substance: ACETAMINOPHEN\ASPIRIN\CAFFEINE
     Indication: HEADACHE
     Route: 048
  3. LIPERSOL [Suspect]
     Active Substance: UNSPECIFIED INGREDIENT

REACTIONS (7)
  - Intestinal polyp [Unknown]
  - Dyspepsia [Unknown]
  - Coagulopathy [Unknown]
  - Haemorrhage [Unknown]
  - Gastric ulcer [Recovering/Resolving]
  - Hypertension [Unknown]
  - Off label use [Recovered/Resolved]

NARRATIVE: CASE EVENT DATE: 2014
